FAERS Safety Report 17440780 (Version 3)
Quarter: 2020Q3

REPORT INFORMATION
  Report Type: Spontaneous
  Country: US (occurrence: US)
  Receive Date: 20200220
  Receipt Date: 20200720
  Transmission Date: 20201102
  Serious: Yes (Hospitalization)
  Sender: FDA-Public Use
  Company Number: US-LEXICON PHARMACEUTICALS, INC-20-1606-00128

PATIENT
  Age: 37 Year
  Sex: Female

DRUGS (3)
  1. LANREOTIDE [Concomitant]
     Active Substance: LANREOTIDE
  2. XERMELO [Suspect]
     Active Substance: TELOTRISTAT ETHYL
     Indication: CARCINOID TUMOUR
     Dates: start: 20191223
  3. XERMELO [Suspect]
     Active Substance: TELOTRISTAT ETHYL

REACTIONS (5)
  - Vomiting [Unknown]
  - Abdominal pain [Unknown]
  - Hospitalisation [Unknown]
  - Enteritis infectious [Unknown]
  - Malaise [Unknown]

NARRATIVE: CASE EVENT DATE: 202004
